FAERS Safety Report 19594624 (Version 1)
Quarter: 2021Q3

REPORT INFORMATION
  Report Type: Spontaneous
  Country: BR (occurrence: BR)
  Receive Date: 20210722
  Receipt Date: 20210722
  Transmission Date: 20211014
  Serious: Yes (Other)
  Sender: FDA-Public Use
  Company Number: BR-PFIZER INC-2021894724

PATIENT
  Age: 75 Year
  Sex: Male

DRUGS (1)
  1. AMIODARONE HCL [Suspect]
     Active Substance: AMIODARONE HYDROCHLORIDE
     Indication: ARRHYTHMIA
     Dosage: 400 MG/DAY, MONDAY TO SATURDAY
     Dates: start: 1979

REACTIONS (1)
  - Neuropathy peripheral [Recovering/Resolving]
